FAERS Safety Report 18574490 (Version 1)
Quarter: 2020Q4

REPORT INFORMATION
  Report Type: Spontaneous
  Country: US (occurrence: US)
  Receive Date: 20201203
  Receipt Date: 20201203
  Transmission Date: 20210114
  Serious: No
  Sender: FDA-Public Use
  Company Number: NVSC2020US322544

PATIENT
  Age: 89 Year
  Sex: Female

DRUGS (2)
  1. VOLTARENE (DICLOFENAC SODIUM) [Suspect]
     Active Substance: DICLOFENAC SODIUM
     Indication: ARTHRITIS
     Dosage: UNK (ONLY USED IT TWICE)
     Route: 065
     Dates: start: 20201115
  2. VOLTARENE (DICLOFENAC SODIUM) [Suspect]
     Active Substance: DICLOFENAC SODIUM
     Indication: ARTHRALGIA
     Dosage: UNK
     Route: 065

REACTIONS (6)
  - Abdominal pain [Recovered/Resolved]
  - Discomfort [Unknown]
  - Product administered at inappropriate site [Unknown]
  - Incorrect dose administered [Unknown]
  - Abdominal pain upper [Unknown]
  - Wrong technique in product usage process [Unknown]

NARRATIVE: CASE EVENT DATE: 20201115
